FAERS Safety Report 7524024-0 (Version None)
Quarter: 2011Q2

REPORT INFORMATION
  Report Type: 
  Country: None (occurrence: None)
  Receive Date: 20110604
  Receipt Date: 20110520
  Transmission Date: 20111010
  Serious: Yes (Death, Hospitalization)
  Sender: FDA-Public Use
  Company Number: NL-WATSON-2011-06814

PATIENT
  Age: 30 Year
  Sex: Female

DRUGS (3)
  1. ACYCLOVIR [Suspect]
     Dosage: 5 MG/KG, TID
     Route: 042
  2. VALACYCLOVIR HYDROCHLORIDE [Suspect]
     Indication: HERPES ZOSTER
     Dosage: UNK
     Route: 042
  3. ACYCLOVIR [Suspect]
     Indication: HERPES ZOSTER
     Dosage: 10 MG/KG, TID

REACTIONS (6)
  - EPILEPSY [None]
  - DRUG INEFFECTIVE [None]
  - GRAFT VERSUS HOST DISEASE [None]
  - RESPIRATORY FAILURE [None]
  - OPTIC NEURITIS [None]
  - ENCEPHALITIS [None]
